FAERS Safety Report 7920456-7 (Version None)
Quarter: 2011Q4

REPORT INFORMATION
  Report Type: 
  Country: None (occurrence: None)
  Receive Date: 20111117
  Receipt Date: 20111109
  Transmission Date: 20120403
  Serious: Yes (Hospitalization, Other)
  Sender: FDA-Public Use
  Company Number: PHEH2010US03416

PATIENT
  Sex: Female

DRUGS (29)
  1. FEMARA [Concomitant]
  2. BENADRYL [Concomitant]
     Dosage: 25 MG, Q4H
     Route: 048
  3. RAZADYNE [Concomitant]
  4. ZOFRAN [Concomitant]
     Dosage: 10 MG, Q8H
     Route: 042
  5. DOXYCYCLINE [Concomitant]
  6. CHEMOTHERAPEUTICS [Concomitant]
  7. AREDIA [Suspect]
  8. DARVOCET-N 50 [Concomitant]
  9. NEUTRA-PHOS [Concomitant]
  10. ZOMETA [Suspect]
     Dates: end: 20060701
  11. TORADOL [Concomitant]
     Route: 042
  12. DILAUDID [Concomitant]
  13. ACETAMINOPHEN [Concomitant]
     Dosage: 500 MG, BID
     Route: 048
  14. REGLAN [Concomitant]
     Dosage: 10 MG, Q6H PRN
     Route: 042
  15. AMBIEN [Concomitant]
  16. NARCAN [Concomitant]
  17. COREG [Concomitant]
     Dosage: 3.125 MG, BID
  18. DITROPAN                                /USA/ [Concomitant]
     Dosage: 5 MG, QD
  19. CEFTAZIDIME [Concomitant]
     Dosage: 2 G, Q12H
  20. DETROL [Concomitant]
     Route: 048
  21. VASOTEC [Concomitant]
     Dosage: 2.5 MG, DAILY
     Route: 048
  22. PHENERGAN [Concomitant]
     Dosage: 25 MG, Q6H
  23. LASIX [Concomitant]
     Dosage: 20 MG, QW3
  24. ASPIRIN [Concomitant]
     Dosage: 81 MG, DAILY
     Route: 048
  25. LISINOPRIL [Concomitant]
     Route: 048
  26. CARVEDILOL [Concomitant]
  27. CLINDAMYCIN [Concomitant]
  28. BETADINE [Concomitant]
     Route: 061
  29. PROVIGIL [Concomitant]
     Dosage: 200 MG, QD

REACTIONS (91)
  - INJURY [None]
  - COUGH [None]
  - CONGENITAL CYSTIC KIDNEY DISEASE [None]
  - ATTENTION DEFICIT/HYPERACTIVITY DISORDER [None]
  - CARDIOMYOPATHY [None]
  - PULMONARY FIBROSIS [None]
  - UTERINE LEIOMYOMA [None]
  - CEREBRAL ATROPHY [None]
  - NOCTURIA [None]
  - PAIN [None]
  - ANHEDONIA [None]
  - ARTHRITIS [None]
  - ATELECTASIS [None]
  - DERMAL CYST [None]
  - FATIGUE [None]
  - DEMENTIA [None]
  - MITRAL VALVE INCOMPETENCE [None]
  - DYSPNOEA [None]
  - BUNDLE BRANCH BLOCK [None]
  - AZOTAEMIA [None]
  - ARTERIOSCLEROSIS [None]
  - SINUSITIS [None]
  - PULMONARY HYPERTENSION [None]
  - POLYURIA [None]
  - ANXIETY [None]
  - METASTASES TO BONE [None]
  - SPINAL COMPRESSION FRACTURE [None]
  - INTERVERTEBRAL DISC DEGENERATION [None]
  - SYNOVIAL CYST [None]
  - OSTEOARTHRITIS [None]
  - DIVERTICULUM INTESTINAL [None]
  - BLADDER PROLAPSE [None]
  - VULVOVAGINITIS [None]
  - CYSTOCELE [None]
  - RECTOCELE [None]
  - TRANSIENT ISCHAEMIC ATTACK [None]
  - VENTRICULAR TACHYCARDIA [None]
  - MYOCARDIAL ISCHAEMIA [None]
  - LEFT VENTRICULAR DYSFUNCTION [None]
  - ATAXIA [None]
  - ARTHRALGIA [None]
  - ROTATOR CUFF SYNDROME [None]
  - BURSITIS [None]
  - BONE LESION [None]
  - CARDIAC FAILURE CONGESTIVE [None]
  - LUNG NEOPLASM [None]
  - CARDIAC PSEUDOANEURYSM [None]
  - INCONTINENCE [None]
  - URINARY TRACT INFECTION [None]
  - VAGINAL EROSION [None]
  - ARRHYTHMIA [None]
  - ESCHERICHIA INFECTION [None]
  - MUSCLE SPASMS [None]
  - MUSCULOSKELETAL PAIN [None]
  - PATHOLOGICAL FRACTURE [None]
  - UTERINE PROLAPSE [None]
  - RENAL CYST [None]
  - OEDEMA PERIPHERAL [None]
  - ANAEMIA [None]
  - LEUKOCYTOSIS [None]
  - PSEUDOMONAS TEST POSITIVE [None]
  - CEREBROVASCULAR ACCIDENT [None]
  - MYALGIA [None]
  - CYST [None]
  - BRONCHIECTASIS [None]
  - PELVIC PAIN [None]
  - OSTEOPOROSIS [None]
  - HYPERGLYCAEMIA [None]
  - OSTEOPENIA [None]
  - VERTEBRAL FORAMINAL STENOSIS [None]
  - SCAPULA FRACTURE [None]
  - EJECTION FRACTION DECREASED [None]
  - EMPHYSEMA [None]
  - CARDIOMEGALY [None]
  - RENAL CYST HAEMORRHAGE [None]
  - LABIA ENLARGED [None]
  - CERVICITIS [None]
  - HEPATIC STEATOSIS [None]
  - RIGHT VENTRICULAR HYPERTROPHY [None]
  - TRICUSPID VALVE INCOMPETENCE [None]
  - OSTEONECROSIS OF JAW [None]
  - HYPOAESTHESIA [None]
  - NERVE COMPRESSION [None]
  - EXOSTOSIS [None]
  - GAIT DISTURBANCE [None]
  - NORMAL PRESSURE HYDROCEPHALUS [None]
  - PARAESTHESIA [None]
  - OVARIAN CYST [None]
  - COR PULMONALE CHRONIC [None]
  - ASTHENIA [None]
  - CHRONIC OBSTRUCTIVE PULMONARY DISEASE [None]
